FAERS Safety Report 8074381-4 (Version None)
Quarter: 2012Q1

REPORT INFORMATION
  Report Type: 
  Country: None (occurrence: None)
  Receive Date: 20120126
  Receipt Date: 20120117
  Transmission Date: 20120608
  Serious: Yes (Life-Threatening, Hospitalization)
  Sender: FDA-Public Use
  Company Number: CA-GLAXOSMITHKLINE-A0961833A

PATIENT
  Age: 80 Year
  Sex: Male

DRUGS (5)
  1. METFORMIN HCL [Concomitant]
  2. AVANDIA [Suspect]
     Indication: PRODUCT USED FOR UNKNOWN INDICATION
     Dosage: 4MG TWICE PER DAY
     Route: 048
  3. CANDESARTAN CILEXETIL [Concomitant]
  4. ATORVASTATIN CALCIUM [Concomitant]
  5. METOPROLOL TARTRATE [Concomitant]

REACTIONS (1)
  - BLADDER CANCER [None]
